FAERS Safety Report 8082557-5 (Version None)
Quarter: 2012Q1

REPORT INFORMATION
  Report Type: 
  Country: None (occurrence: None)
  Receive Date: 20120127
  Receipt Date: 20110222
  Transmission Date: 20120608
  Serious: Yes (Hospitalization)
  Sender: FDA-Public Use
  Company Number: US-ABBOTT-11P-163-0706869-00

PATIENT
  Sex: Male
  Weight: 93.07 kg

DRUGS (5)
  1. AMBIEN [Concomitant]
     Indication: INSOMNIA
  2. HUMIRA [Suspect]
     Indication: RHEUMATOID ARTHRITIS
     Dates: start: 20070101
  3. XANAX [Concomitant]
     Indication: PRODUCT USED FOR UNKNOWN INDICATION
  4. MORPHINE [Suspect]
     Indication: RHEUMATOID ARTHRITIS
  5. OXYCONTIN [Concomitant]
     Indication: RHEUMATOID ARTHRITIS

REACTIONS (1)
  - ABDOMINAL PAIN UPPER [None]
